APPROVED DRUG PRODUCT: MEFOXIN
Active Ingredient: CEFOXITIN SODIUM
Strength: EQ 2GM BASE/VIAL
Dosage Form/Route: INJECTABLE;INJECTION
Application: A062757 | Product #002
Applicant: PHARMOBEDIENT CONSULTING LLC
Approved: Jan 8, 1987 | RLD: No | RS: No | Type: DISCN